FAERS Safety Report 9223494 (Version 2)
Quarter: 2013Q2

REPORT INFORMATION
  Report Type: Spontaneous
  Country: US (occurrence: US)
  Receive Date: 20130410
  Receipt Date: 20130417
  Transmission Date: 20140414
  Serious: Yes (Hospitalization)
  Sender: FDA-Public Use
  Company Number: US-BAXTER-2013BAX013202

PATIENT
  Sex: 0

DRUGS (2)
  1. ADVATE [Suspect]
     Indication: HAEMOPHILIA
     Route: 065
  2. STIMATE [Concomitant]
     Indication: HAEMOPHILIA
     Route: 065

REACTIONS (1)
  - Injury [Unknown]
